FAERS Safety Report 7230035-5 (Version None)
Quarter: 2011Q1

REPORT INFORMATION
  Report Type: 
  Country: None (occurrence: None)
  Receive Date: 20110118
  Receipt Date: 20110113
  Transmission Date: 20110831
  Serious: Yes (Other)
  Sender: FDA-Public Use
  Company Number: US-ASTRAZENECA-2006UW09869

PATIENT
  Age: 23321 Day
  Sex: Female
  Weight: 83.9 kg

DRUGS (31)
  1. SEROQUEL [Suspect]
     Indication: PSYCHOTIC DISORDER
     Dosage: 250 MG-300MG
     Route: 048
     Dates: start: 20020315, end: 20041101
  2. ZOLOFT [Concomitant]
     Indication: SCHIZOAFFECTIVE DISORDER BIPOLAR TYPE
     Route: 048
     Dates: start: 19921223
  3. ABILIFY [Concomitant]
     Indication: PSYCHOTIC DISORDER
     Route: 048
     Dates: start: 20010101
  4. HALDOL [Concomitant]
  5. TRAZODONE [Concomitant]
     Route: 048
     Dates: start: 20041102
  6. ZOLOFT [Concomitant]
     Route: 048
     Dates: start: 20041004
  7. BENADRYL [Concomitant]
     Dates: start: 20020719
  8. SEROQUEL [Suspect]
     Indication: DEPRESSION
     Dosage: 250 MG-300MG
     Route: 048
     Dates: start: 20020315, end: 20041101
  9. SEROQUEL [Suspect]
     Route: 048
     Dates: start: 20020719
  10. BENADRYL [Concomitant]
     Route: 048
     Dates: start: 20020315
  11. SEROQUEL [Suspect]
     Route: 048
     Dates: start: 20030512, end: 20041005
  12. SEROQUEL [Suspect]
     Route: 048
     Dates: start: 20030512, end: 20041005
  13. ZOLOFT [Concomitant]
     Route: 048
     Dates: start: 20041004
  14. SEROQUEL [Suspect]
     Route: 048
     Dates: start: 20020719
  15. SEROQUEL [Suspect]
     Indication: SCHIZOAFFECTIVE DISORDER
     Dosage: 250 MG-300MG
     Route: 048
     Dates: start: 20020315, end: 20041101
  16. SEROQUEL [Suspect]
     Route: 048
     Dates: start: 20020719
  17. SEROQUEL [Suspect]
     Route: 048
     Dates: start: 20030512, end: 20041005
  18. ABILIFY [Concomitant]
     Indication: AFFECTIVE DISORDER
     Route: 048
     Dates: start: 20010101
  19. ABILIFY [Concomitant]
     Route: 048
     Dates: start: 20050603
  20. XANAX [Concomitant]
     Indication: NERVOUSNESS
     Dosage: 0.5 MG-1.5 MG
     Route: 048
     Dates: start: 20020719
  21. XANAX [Concomitant]
     Indication: ANXIETY
     Dosage: 0.5 MG-1.5 MG
     Route: 048
     Dates: start: 20020719
  22. TRAZODONE [Concomitant]
     Indication: INSOMNIA
     Dates: start: 20050603
  23. ZOLOFT [Concomitant]
     Indication: DEPRESSION
     Route: 048
     Dates: start: 19921223
  24. LIPITOR [Concomitant]
     Indication: HYPERCHOLESTEROLAEMIA
     Dates: start: 20021203
  25. ABILIFY [Concomitant]
     Route: 048
     Dates: start: 20050603
  26. XANAX [Concomitant]
     Route: 048
     Dates: start: 20020315
  27. XANAX [Concomitant]
     Route: 048
     Dates: start: 20020315
  28. ATENOLOL [Concomitant]
     Dates: start: 20050603
  29. ATENOLOL [Concomitant]
     Route: 048
     Dates: start: 20041004
  30. THORAZINE [Concomitant]
  31. NORVASC [Concomitant]
     Indication: HYPERTENSION
     Dates: start: 20021203

REACTIONS (3)
  - DIABETES MELLITUS INADEQUATE CONTROL [None]
  - TYPE 2 DIABETES MELLITUS [None]
  - RETINOPATHY [None]
